FAERS Safety Report 5770257-3 (Version None)
Quarter: 2008Q2

REPORT INFORMATION
  Report Type: 
  Country: None (occurrence: None)
  Receive Date: 20080613
  Receipt Date: 20080425
  Transmission Date: 20081010
  Serious: No
  Sender: FDA-Public Use
  Company Number: US-ABBOTT-08P-163-0449391-00

PATIENT
  Sex: Female

DRUGS (4)
  1. HUMIRA [Suspect]
     Indication: CROHN'S DISEASE
     Route: 058
     Dates: end: 20080301
  2. HUMIRA [Suspect]
     Dosage: STARTER DOSE
     Route: 058
     Dates: end: 20080301
  3. HUMIRA [Suspect]
     Route: 058
     Dates: end: 20080301
  4. UNSPECIFIED MEDICATIONS [Concomitant]
     Indication: DRUG USE FOR UNKNOWN INDICATION

REACTIONS (4)
  - ARTHRITIS [None]
  - DRUG DOSE OMISSION [None]
  - OEDEMA PERIPHERAL [None]
  - SKIN INFLAMMATION [None]
